FAERS Safety Report 11376696 (Version 2)
Quarter: 2015Q3

REPORT INFORMATION
  Report Type: Spontaneous
  Country: PK (occurrence: PK)
  Receive Date: 20150813
  Receipt Date: 20150814
  Transmission Date: 20151125
  Serious: Yes (Hospitalization)
  Sender: FDA-Public Use
  Company Number: PHHY2015PK092573

PATIENT
  Sex: Male

DRUGS (2)
  1. TERNELIN [Suspect]
     Active Substance: TIZANIDINE
     Indication: MUSCLE SPASMS
     Dosage: 1 DF, QD
     Route: 048
  2. CATAFLAM [Suspect]
     Active Substance: DICLOFENAC POTASSIUM
     Indication: MUSCLE SPASMS
     Dosage: 1 DF, QD
     Route: 048

REACTIONS (5)
  - Hypersensitivity [Recovered/Resolved]
  - Pruritus [Unknown]
  - Pruritus generalised [Unknown]
  - Muscle tightness [Unknown]
  - Chest discomfort [Unknown]
